FAERS Safety Report 4566982-2 (Version None)
Quarter: 2005Q1

REPORT INFORMATION
  Report Type: 
  Country: None (occurrence: None)
  Receive Date: 20050201
  Receipt Date: 20040212
  Transmission Date: 20050727
  Serious: Yes (Other)
  Sender: FDA-Public Use
  Company Number: US-BRISTOL-MYERS SQUIBB COMPANY-12510590

PATIENT
  Age: 43 Year
  Sex: Female

DRUGS (20)
  1. STADOL [Suspect]
     Indication: MIGRAINE
     Dates: start: 19960301
  2. DEMEROL [Concomitant]
     Dates: start: 19960101
  3. PHENERGAN [Concomitant]
     Dates: start: 19960101
  4. HYDROCODONE + ACETAMINOPHEN [Concomitant]
  5. CARISOPRODOL [Concomitant]
  6. BUTALBITAL [Concomitant]
  7. DARVOCET [Concomitant]
  8. IMITREX [Concomitant]
     Indication: MIGRAINE
  9. PROZAC [Concomitant]
  10. ZOLOFT [Concomitant]
  11. VICOPROFEN [Concomitant]
  12. ATENOLOL [Concomitant]
  13. PAXIL [Concomitant]
  14. ZYRTEC [Concomitant]
  15. AMBIEN [Concomitant]
  16. CLONAZEPAM [Concomitant]
  17. CEPHALEXIN [Concomitant]
  18. AMITRIPTYLINE [Concomitant]
  19. EFFEXOR [Concomitant]
     Indication: MIGRAINE
  20. DESYREL [Concomitant]
     Indication: MIGRAINE

REACTIONS (1)
  - DEPENDENCE [None]
